FAERS Safety Report 20452665 (Version 3)
Quarter: 2022Q4

REPORT INFORMATION
  Report Type: Spontaneous
  Country: NL (occurrence: NL)
  Receive Date: 20220210
  Receipt Date: 20221228
  Transmission Date: 20230113
  Serious: Yes (Other)
  Sender: FDA-Public Use
  Company Number: NL-Shilpa Medicare Limited-SML-NL-2021-01548

PATIENT
  Age: 86 Year
  Sex: Female

DRUGS (15)
  1. ERLOTINIB [Suspect]
     Active Substance: ERLOTINIB
     Indication: Non-small cell lung cancer
     Dosage: 150 MILLIGRAM, DAILY
     Route: 048
  2. ERLOTINIB [Suspect]
     Active Substance: ERLOTINIB
     Dosage: 100 MILLIGRAM, DAILY, ,DOSE REDUCED TO100MG/DAY.
     Route: 048
  3. MINOCYCLINE [Suspect]
     Active Substance: MINOCYCLINE HYDROCHLORIDE
     Indication: Skin toxicity
     Dosage: 100 MILLIGRAM, (1DD1, FOR EIGHT MONTHS)
     Route: 065
  4. MINOCYCLINE [Suspect]
     Active Substance: MINOCYCLINE HYDROCHLORIDE
     Route: 065
  5. SIMVASTATIN [Suspect]
     Active Substance: SIMVASTATIN
     Indication: Product used for unknown indication
     Dosage: 40 MILLIGRAM, (1DD1, FOR TEN YEARS)
     Route: 065
  6. SIMVASTATIN [Suspect]
     Active Substance: SIMVASTATIN
     Indication: Product used for unknown indication
     Route: 065
  7. OMEPRAZOLE [Concomitant]
     Active Substance: OMEPRAZOLE
     Indication: Product used for unknown indication
     Dosage: (1DD1, FOR 7 YEARS)
     Route: 065
  8. OMEPRAZOLE [Concomitant]
     Active Substance: OMEPRAZOLE
     Indication: Product used for unknown indication
     Dosage: (1DD1, FOR TEN YEARS)
     Route: 065
  9. OMEPRAZOLE [Concomitant]
     Active Substance: OMEPRAZOLE
     Route: 065
  10. OMEPRAZOLE [Concomitant]
     Active Substance: OMEPRAZOLE
     Route: 065
  11. ASPIRIN [Concomitant]
     Active Substance: ASPIRIN
     Indication: Product used for unknown indication
     Dosage: 80 MILLIGRAM, (1DD1, FOR TEN YEARS)
     Route: 065
  12. ASPIRIN [Concomitant]
     Active Substance: ASPIRIN
     Indication: Product used for unknown indication
     Dosage: 80 MILLIGRAM
     Route: 065
  13. METOPROLOL [Concomitant]
     Active Substance: METOPROLOL
     Indication: Product used for unknown indication
     Dosage: 50 MILLIGRAM, (1DD1, FOR TEN YEARS)
     Route: 065
  14. METOPROLOL [Concomitant]
     Active Substance: METOPROLOL
     Indication: Product used for unknown indication
     Dosage: 50 MILLIGRAM
     Route: 065
  15. DOXYCYCLINE [Concomitant]
     Active Substance: DOXYCYCLINE
     Indication: Product used for unknown indication
     Dosage: 100 MG, 1 ONCE A DAY)
     Route: 065

REACTIONS (6)
  - Fatigue [Recovering/Resolving]
  - Nausea [Recovering/Resolving]
  - Loss of personal independence in daily activities [Recovering/Resolving]
  - Myalgia [Recovering/Resolving]
  - Skin hyperpigmentation [Recovering/Resolving]
  - Rash pustular [Recovering/Resolving]
